FAERS Safety Report 19242859 (Version 7)
Quarter: 2023Q2

REPORT INFORMATION
  Report Type: Spontaneous
  Country: US (occurrence: US)
  Receive Date: 20210511
  Receipt Date: 20230609
  Transmission Date: 20230721
  Serious: Yes (Hospitalization, Other)
  Sender: FDA-Public Use
  Company Number: US-PFIZER INC-2021208885

PATIENT
  Age: 83 Year
  Sex: Female

DRUGS (4)
  1. IBRANCE [Suspect]
     Active Substance: PALBOCICLIB
     Dosage: 125 MG
     Dates: start: 20210120
  2. IBRANCE [Suspect]
     Active Substance: PALBOCICLIB
     Dosage: 125 MG
     Dates: start: 20210206
  3. IBRANCE [Suspect]
     Active Substance: PALBOCICLIB
     Dosage: 125 MG
     Dates: start: 20210207, end: 20221109
  4. IBRANCE [Suspect]
     Active Substance: PALBOCICLIB
     Dosage: 125 MG

REACTIONS (6)
  - Heart valve operation [Unknown]
  - Cardiac pacemaker insertion [Unknown]
  - Heart valve replacement [Unknown]
  - Epistaxis [Recovered/Resolved]
  - Stomatitis [Not Recovered/Not Resolved]
  - Blood iron decreased [Unknown]

NARRATIVE: CASE EVENT DATE: 20220101
